FAERS Safety Report 9486611 (Version 1)
Quarter: 2013Q3

REPORT INFORMATION
  Report Type: Spontaneous
  Country: FR (occurrence: FR)
  Receive Date: 20130829
  Receipt Date: 20130829
  Transmission Date: 20140515
  Serious: Yes (Other)
  Sender: FDA-Public Use
  Company Number: FR-PFIZER INC-2013245001

PATIENT
  Age: 89 Year
  Sex: Female

DRUGS (1)
  1. ALDACTONE [Suspect]
     Dosage: UNK
     Dates: start: 201307

REACTIONS (5)
  - Hepatitis [Unknown]
  - Fatigue [Unknown]
  - Pain in extremity [Unknown]
  - Chromaturia [Unknown]
  - Pollakiuria [Unknown]
